FAERS Safety Report 6869944-5 (Version None)
Quarter: 2010Q3

REPORT INFORMATION
  Report Type: 
  Country: None (occurrence: None)
  Receive Date: 20100722
  Receipt Date: 20080916
  Transmission Date: 20110219
  Serious: No
  Sender: FDA-Public Use
  Company Number: US-PFIZER INC-2008077881

PATIENT
  Sex: Female

DRUGS (7)
  1. CHANTIX [Suspect]
     Indication: SMOKING CESSATION THERAPY
     Dates: start: 20080901, end: 20080915
  2. ZOLOFT [Suspect]
     Indication: DEPRESSION
  3. HUMIRA [Concomitant]
  4. FLEXERIL [Concomitant]
  5. VITAMINS [Concomitant]
  6. VICODIN [Concomitant]
  7. HYDROCHLOROTHIAZIDE [Concomitant]

REACTIONS (2)
  - DEPRESSION [None]
  - NAUSEA [None]
